FAERS Safety Report 12325621 (Version 1)
Quarter: 2016Q2

REPORT INFORMATION
  Report Type: Other
  Country: DE (occurrence: DE)
  Receive Date: 20160503
  Receipt Date: 20160503
  Transmission Date: 20160815
  Serious: Yes (Hospitalization, Other)
  Sender: FDA-Public Use
  Company Number: DE-LUPIN PHARMACEUTICALS INC.-E2B_00003659

PATIENT
  Age: 33 Year
  Sex: Female

DRUGS (21)
  1. ARIPIPRAZOL [Suspect]
     Active Substance: ARIPIPRAZOLE
     Indication: PRODUCT USED FOR UNKNOWN INDICATION
     Dosage: 5 MG
     Route: 048
     Dates: start: 20140930, end: 20140930
  2. QUETIAPIN RETARD [Suspect]
     Active Substance: QUETIAPINE
     Dosage: 400 MG
     Route: 048
     Dates: start: 20141113, end: 20150212
  3. QUETIAPIN RETARD [Suspect]
     Active Substance: QUETIAPINE
     Dosage: 250 MG
     Route: 048
     Dates: start: 20150219, end: 20150304
  4. ABILIFY MAINTENA [Suspect]
     Active Substance: ARIPIPRAZOLE
     Dosage: 300 MG
     Route: 030
     Dates: start: 20150402
  5. L-THYROXIN [Concomitant]
     Active Substance: LEVOTHYROXINE SODIUM
     Indication: THYROID DISORDER
     Dosage: 75 MICROGRAM
     Route: 048
  6. ARIPIPRAZOL [Suspect]
     Active Substance: ARIPIPRAZOLE
     Dosage: 10 MG
     Route: 048
     Dates: start: 20141222, end: 20141225
  7. QUETIAPIN RETARD [Suspect]
     Active Substance: QUETIAPINE
     Dosage: 200 MG
     Route: 048
     Dates: start: 20150305, end: 20150312
  8. ARIPIPRAZOL [Suspect]
     Active Substance: ARIPIPRAZOLE
     Dosage: 10 MG
     Route: 048
     Dates: start: 20141001, end: 20141001
  9. ARIPIPRAZOL [Suspect]
     Active Substance: ARIPIPRAZOLE
     Dosage: 15 MG
     Route: 048
     Dates: start: 20141219, end: 20141221
  10. QUETIAPIN RETARD [Suspect]
     Active Substance: QUETIAPINE
     Indication: PRODUCT USED FOR UNKNOWN INDICATION
     Dosage: 125 MG
     Route: 048
     Dates: start: 20141104, end: 20141112
  11. QUETIAPIN RETARD [Suspect]
     Active Substance: QUETIAPINE
     Dosage: 150 MG
     Route: 048
     Dates: start: 20150313, end: 20150317
  12. ABILIFY MAINTENA [Suspect]
     Active Substance: ARIPIPRAZOLE
     Indication: PRODUCT USED FOR UNKNOWN INDICATION
     Dosage: 400 MG
     Route: 030
     Dates: start: 20141212, end: 20141212
  13. ABILIFY MAINTENA [Suspect]
     Active Substance: ARIPIPRAZOLE
     Dosage: 400 MG
     Route: 030
     Dates: start: 20150306, end: 20150306
  14. ARIPIPRAZOL [Suspect]
     Active Substance: ARIPIPRAZOLE
     Dosage: 20 MG
     Route: 048
     Dates: start: 20141025, end: 20141218
  15. QUETIAPIN RETARD [Suspect]
     Active Substance: QUETIAPINE
     Dosage: 200 MG
     Route: 048
     Dates: start: 20150317
  16. ABILIFY MAINTENA [Suspect]
     Active Substance: ARIPIPRAZOLE
     Dosage: 400 MG
     Route: 030
     Dates: start: 20150206, end: 20150206
  17. QUETIAPIN RETARD [Suspect]
     Active Substance: QUETIAPINE
     Dosage: 300 MG
     Route: 048
     Dates: start: 20150213, end: 20150218
  18. ABILIFY MAINTENA [Suspect]
     Active Substance: ARIPIPRAZOLE
     Dosage: 400 MG
     Route: 030
     Dates: start: 20150109, end: 20150109
  19. QUETIAPIN [Suspect]
     Active Substance: QUETIAPINE
     Indication: PRODUCT USED FOR UNKNOWN INDICATION
     Dosage: 50 MG
     Dates: end: 20150121
  20. ARIPIPRAZOL [Suspect]
     Active Substance: ARIPIPRAZOLE
     Dosage: 15 MG
     Route: 048
     Dates: start: 20141002, end: 20141024
  21. ARIPIPRAZOL [Suspect]
     Active Substance: ARIPIPRAZOLE
     Dosage: 5 MG
     Route: 048
     Dates: start: 20141226, end: 20150101

REACTIONS (1)
  - Sinus tachycardia [Recovered/Resolved]

NARRATIVE: CASE EVENT DATE: 20141214
